FAERS Safety Report 10470010 (Version 1)
Quarter: 2014Q3

REPORT INFORMATION
  Report Type: Spontaneous
  Country: US (occurrence: US)
  Receive Date: 20140923
  Receipt Date: 20140923
  Transmission Date: 20150326
  Serious: No
  Sender: FDA-Public Use
  Company Number: US-SHIONOGI, INC-2014000750

PATIENT
  Age: 51 Year
  Sex: Female

DRUGS (2)
  1. LIPITOR [Concomitant]
     Active Substance: ATORVASTATIN CALCIUM
     Indication: BLOOD CHOLESTEROL INCREASED
     Dosage: 10 MG, QD
     Route: 065
  2. OSPHENA [Suspect]
     Active Substance: OSPEMIFENE
     Indication: DYSPAREUNIA
     Dosage: 60 MG, UNK
     Route: 065
     Dates: start: 20140721, end: 20140722

REACTIONS (5)
  - Discomfort [Unknown]
  - Paraesthesia [Unknown]
  - Perineal pain [Unknown]
  - Vulvovaginal discomfort [Unknown]
  - Micturition urgency [Unknown]

NARRATIVE: CASE EVENT DATE: 20140721
